FAERS Safety Report 22354330 (Version 1)
Quarter: 2023Q2

REPORT INFORMATION
  Report Type: Spontaneous
  Country: US (occurrence: None)
  Receive Date: 20230522
  Receipt Date: 20230522
  Transmission Date: 20230721
  Serious: Yes (Disabling)
  Sender: FDA-Public Use
  Company Number: None

PATIENT
  Age: 73 Year
  Sex: Female
  Weight: 66.15 kg

DRUGS (12)
  1. BIMATOPROST [Suspect]
     Active Substance: BIMATOPROST
     Indication: Eyelash thickening
     Dosage: OTHER QUANTITY : 1 DROP(S);?FREQUENCY : AT BEDTIME;?
     Route: 061
     Dates: start: 20230315, end: 20230510
  2. 20 mg atorvastatin [Concomitant]
  3. VITAMIN C [Concomitant]
     Active Substance: ASCORBIC ACID
  4. VITAMIN D [Concomitant]
     Active Substance: VITAMIN D NOS
  5. VITAMIN B COMPLEX [Concomitant]
     Active Substance: CYANOCOBALAMIN\DEXPANTHENOL\NIACINAMIDE\PYRIDOXINE HYDROCHLORIDE\RIBOFLAVIN 5^-PHOSPHATE SODIUM\THIA
  6. ZINC [Concomitant]
     Active Substance: ZINC
  7. JWH-018 [Concomitant]
     Active Substance: JWH-018
  8. MAGNESIUM [Concomitant]
     Active Substance: MAGNESIUM
  9. NIACIN [Concomitant]
     Active Substance: NIACIN
  10. FISH OIL [Concomitant]
     Active Substance: FISH OIL
  11. HERBALS\TURMERIC [Concomitant]
     Active Substance: HERBALS\TURMERIC
  12. presser vision [Concomitant]

REACTIONS (3)
  - Application site discolouration [None]
  - Application site pruritus [None]
  - Therapeutic product effect incomplete [None]

NARRATIVE: CASE EVENT DATE: 20230320
